FAERS Safety Report 7454390-6 (Version None)
Quarter: 2011Q2

REPORT INFORMATION
  Report Type: 
  Country: None (occurrence: None)
  Receive Date: 20110503
  Receipt Date: 20110419
  Transmission Date: 20111010
  Serious: Yes (Other)
  Sender: FDA-Public Use
  Company Number: US-BAYER-201039766NA

PATIENT
  Age: 34 Year
  Sex: Female

DRUGS (15)
  1. ZITHROMAX [Concomitant]
     Indication: PNEUMONIA
     Dosage: 500 MG, UNK
     Route: 048
     Dates: start: 20090415
  2. CIPRO [Concomitant]
     Indication: PNEUMONIA
     Dosage: 500 MG, UNK
     Route: 048
     Dates: start: 20090415
  3. TORADOL [Concomitant]
     Dosage: 60 MG, UNK
     Route: 030
     Dates: start: 20090415
  4. NORCO [Concomitant]
     Dosage: UNK
     Route: 048
     Dates: start: 20090416
  5. VICODIN [Concomitant]
     Indication: PAIN
     Dosage: 500 UNK, UNK
     Route: 048
     Dates: start: 20090416
  6. COUMADIN [Concomitant]
     Dosage: 5 MG, QD
     Dates: start: 20090501
  7. MUCINEX D [Concomitant]
  8. LODINE [Concomitant]
     Dosage: 300 MG, UNK
     Route: 048
     Dates: start: 20090415
  9. GUAIFENESIN [Concomitant]
     Indication: PNEUMONIA
     Dosage: UNK UNK, BID
     Dates: start: 20090415
  10. LEVAQUIN [Concomitant]
     Indication: PNEUMONIA
     Dosage: 750 MG, UNK
     Route: 048
     Dates: start: 20090416
  11. LEXAPRO [Concomitant]
     Dosage: 10 MG, QD
     Dates: start: 20090701
  12. LOVENOX [Concomitant]
     Dosage: UNK
     Dates: start: 20090501
  13. YAZ [Suspect]
     Dosage: UNK UNK, QD
     Route: 048
     Dates: start: 20090304, end: 20090403
  14. ROCEPHIN [Concomitant]
     Indication: PNEUMONIA
     Dosage: UNK
     Route: 042
     Dates: start: 20090415, end: 20090415
  15. COUMADIN [Concomitant]
     Dosage: 6 UNK, UNK
     Dates: start: 20090701

REACTIONS (1)
  - PULMONARY EMBOLISM [None]
